FAERS Safety Report 10449312 (Version 1)
Quarter: 2014Q3

REPORT INFORMATION
  Report Type: Spontaneous
  Country: NZ (occurrence: NZ)
  Receive Date: 20140912
  Receipt Date: 20140912
  Transmission Date: 20150326
  Serious: Yes (Other)
  Sender: FDA-Public Use
  Company Number: PHHY2014NZ116750

PATIENT
  Age: 53 Year
  Sex: Female

DRUGS (2)
  1. ZOLEDRONATE [Suspect]
     Active Substance: ZOLEDRONIC ACID
     Dosage: 5 MG,
     Route: 042
  2. CYCLOPENTOLATE [Concomitant]
     Active Substance: CYCLOPENTOLATE
     Indication: IRIS ADHESIONS

REACTIONS (1)
  - Conjunctival haemorrhage [Unknown]
